FAERS Safety Report 14499095 (Version 3)
Quarter: 2018Q2

REPORT INFORMATION
  Report Type: Report from Study
  Country: None (occurrence: FR)
  Receive Date: 20180207
  Receipt Date: 20180620
  Transmission Date: 20180711
  Serious: Yes (Other)
  Sender: FDA-Public Use
  Company Number: FR-ABBVIE-18P-056-2236693-00

PATIENT
  Age: 71 Year
  Sex: Male
  Weight: 58 kg

DRUGS (13)
  1. DOXORUBICIN [Suspect]
     Active Substance: DOXORUBICIN
     Indication: B-CELL LYMPHOMA
     Dosage: MOST RECENT DOSE( 82 MG) PRIOR TO SAE ONSET ON 01/APR/16
     Route: 042
     Dates: start: 20151214
  2. LOXEN [Concomitant]
     Indication: HYPERTENSION
     Dates: start: 20151204
  3. VINCRISTINE [Suspect]
     Active Substance: VINCRISTINE
     Indication: B-CELL LYMPHOMA
     Dosage: MOST RECENT DOSE( 2 MG) PRIOR TO SAE ONSET ON 01/APR/16
     Route: 042
     Dates: start: 20151215
  4. VALACICLOVIR [Concomitant]
     Active Substance: VALACYCLOVIR HYDROCHLORIDE
     Indication: VIRAL INFECTION
     Dates: start: 20151209
  5. CYCLOPHOSPHAMIDE. [Suspect]
     Active Substance: CYCLOPHOSPHAMIDE
     Indication: B-CELL LYMPHOMA
     Dosage: MOST RECENT DOSE(1220 MG) PRIOR TO SAE ONSET ON 01/APR/16
     Route: 042
     Dates: start: 20151214
  6. TRIMETHOPRIME [Concomitant]
     Active Substance: TRIMETHOPRIM
     Indication: BACTERIAL INFECTION
     Dates: start: 20151210
  7. DUPHALAC [Concomitant]
     Active Substance: LACTULOSE
     Indication: CONSTIPATION
     Dates: start: 20151213
  8. RITUXIMAB. [Suspect]
     Active Substance: RITUXIMAB
     Indication: B-CELL LYMPHOMA
     Dosage: MOST RECENT DOSE ( 610 MG) PRIOR TO SAE ONSET ON 13/MAY/16 AT 13:15
     Route: 042
     Dates: start: 20151214
  9. PREDNISONE. [Suspect]
     Active Substance: PREDNISONE
     Indication: B-CELL LYMPHOMA
     Dosage: DAYS 1, 5 + 15 OF EACH CYCLE; MOST RECENT DOSE(F 100 MG)  WAS ON: 05/APR/16
     Route: 048
     Dates: start: 20151214
  10. SULFAMETHOXAZOLE [Concomitant]
     Active Substance: SULFAMETHOXAZOLE
     Indication: BACTERIAL INFECTION
     Dates: start: 20151210
  11. VENETOCLAX. [Suspect]
     Active Substance: VENETOCLAX
     Indication: B-CELL LYMPHOMA
     Dosage: 200 - 800MG DAILY PER PROTOCOL;  MOST RECENT DOSE (800 MG ) ON 22/MAY/16
     Route: 048
     Dates: start: 20151217
  12. CALCIUM FOLINATE [Concomitant]
     Active Substance: LEUCOVORIN CALCIUM
     Indication: HAEMATOTOXICITY
     Dates: start: 20151210
  13. BARACLUDE [Concomitant]
     Active Substance: ENTECAVIR
     Indication: HEPATITIS B
     Dates: start: 20151210

REACTIONS (1)
  - Myelodysplastic syndrome [Not Recovered/Not Resolved]

NARRATIVE: CASE EVENT DATE: 20171204
